FAERS Safety Report 8430770 (Version 3)
Quarter: 2012Q4

REPORT INFORMATION
  Report Type: 
  Country: US (occurrence: US)
  Receive Date: 20120228
  Receipt Date: 20120907
  Transmission Date: 20130627
  Serious: Yes (Hospitalization)
  Sender: FDA-Public Use
  Company Number: US-BAYER-2012-017499

PATIENT
  Age: 20 Year
  Sex: Female
  Weight: 126.98 kg

DRUGS (7)
  1. OCELLA [Suspect]
     Dosage: UNK
     Dates: start: 2007, end: 2008
  2. YAZ [Suspect]
     Dosage: UNK
  3. IBUPROFEN [Concomitant]
     Indication: INFLAMMATION
     Dosage: 80 mg, UNK
     Route: 048
  4. VICODIN [Concomitant]
     Indication: PAIN
     Route: 048
  5. PRENATAL VITAMINS [Concomitant]
     Route: 048
  6. PROMETHAZINE [Concomitant]
     Route: 048
  7. METRONIDAZOLE [Concomitant]
     Dosage: 500 mg, UNK
     Dates: start: 20080901

REACTIONS (3)
  - Gallbladder injury [None]
  - Cholecystitis chronic [None]
  - Pain [None]
